FAERS Safety Report 21308887 (Version 4)
Quarter: 2023Q2

REPORT INFORMATION
  Report Type: Report from Study
  Country: KR (occurrence: KR)
  Receive Date: 20220908
  Receipt Date: 20230516
  Transmission Date: 20230721
  Serious: Yes (Hospitalization)
  Sender: FDA-Public Use
  Company Number: KR-JNJFOC-20220903102

PATIENT
  Age: 64 Year
  Sex: Female
  Weight: 64.1 kg

DRUGS (21)
  1. AMIVANTAMAB [Suspect]
     Active Substance: AMIVANTAMAB
     Indication: Non-small cell lung cancer
     Route: 065
     Dates: start: 20210324, end: 20220518
  2. LYRICA [Concomitant]
     Active Substance: PREGABALIN
     Indication: Paraesthesia
     Route: 048
     Dates: start: 20220727
  3. XALOST [Concomitant]
     Indication: Glaucoma
     Route: 047
     Dates: start: 20210819
  4. CEPHALEXIN [Concomitant]
     Active Substance: CEPHALEXIN
     Indication: Rash
     Route: 048
     Dates: start: 20220427
  5. LAFUTIDINE [Concomitant]
     Active Substance: LAFUTIDINE
     Indication: Prophylaxis
     Route: 048
     Dates: start: 20220427
  6. MINOCYCLINE HYDROCHLORIDE [Concomitant]
     Active Substance: MINOCYCLINE HYDROCHLORIDE
     Indication: Rash
     Route: 048
     Dates: start: 20220427
  7. MINOCYCLINE HYDROCHLORIDE [Concomitant]
     Active Substance: MINOCYCLINE HYDROCHLORIDE
     Indication: Rash erythematous
     Route: 048
     Dates: start: 20220629
  8. BRINTELLIX [VORTIOXETINE HYDROBROMIDE] [Concomitant]
     Indication: Depression
     Route: 048
     Dates: start: 20220509, end: 20220828
  9. BEAROBAN [Concomitant]
     Indication: Rash
     Route: 061
     Dates: start: 202205
  10. LORAZEPAM [Concomitant]
     Active Substance: LORAZEPAM
     Indication: Depression
     Route: 048
     Dates: start: 20220607, end: 20220828
  11. K CAB [Concomitant]
     Indication: Rash
     Route: 048
     Dates: start: 20220629
  12. DESOXIMETASONE [Concomitant]
     Active Substance: DESOXIMETASONE
     Indication: Rash
     Dosage: 1 (NO UNITS PROVIDED)
     Route: 061
     Dates: start: 20220629, end: 20220823
  13. DESOXIMETASONE [Concomitant]
     Active Substance: DESOXIMETASONE
     Indication: Rash erythematous
  14. REMICUT [Concomitant]
     Indication: Rash
     Route: 048
     Dates: start: 20220629
  15. REMICUT [Concomitant]
     Indication: Rash erythematous
  16. ESPERSON [Concomitant]
     Indication: Rash
     Route: 061
     Dates: start: 20220713
  17. LEVOTENSION [Concomitant]
     Indication: Hypertension
     Route: 048
     Dates: start: 2010
  18. KANARB [Concomitant]
     Indication: Hypertension
     Route: 048
     Dates: start: 2010
  19. ACELEX [POLMACOXIB] [Concomitant]
     Indication: Rash
     Route: 048
     Dates: start: 20220427
  20. ETIZOLAM [Concomitant]
     Active Substance: ETIZOLAM
     Indication: Depression
     Route: 048
     Dates: start: 20220509, end: 20220828
  21. SOXINASE [Concomitant]
     Indication: Depression
     Route: 048
     Dates: start: 20220509, end: 20220828

REACTIONS (2)
  - Hypophagia [Recovered/Resolved]
  - Nausea [Recovered/Resolved]

NARRATIVE: CASE EVENT DATE: 20220829
